FAERS Safety Report 16545435 (Version 1)
Quarter: 2019Q3

REPORT INFORMATION
  Report Type: Spontaneous
  Country: FR (occurrence: FR)
  Receive Date: 20190709
  Receipt Date: 20190709
  Transmission Date: 20191004
  Serious: Yes (Hospitalization)
  Sender: FDA-Public Use
  Company Number: FR-MYLANLABS-2019M1062470

PATIENT
  Sex: Female
  Weight: 3.3 kg

DRUGS (2)
  1. PAROXETINE. [Suspect]
     Active Substance: PAROXETINE
     Indication: DEPRESSION
     Dosage: 30 MILLIGRAM, QD
     Route: 064
     Dates: start: 201804, end: 20190104
  2. STILNOX [Suspect]
     Active Substance: ZOLPIDEM TARTRATE
     Indication: INSOMNIA
     Dosage: UNK (CF COMMENTAIRE)
     Route: 064
     Dates: start: 201804, end: 20190103

REACTIONS (4)
  - Hypotonia [Recovering/Resolving]
  - Foetal exposure during pregnancy [Recovered/Resolved]
  - Poor sucking reflex [Recovering/Resolving]
  - Somnolence [Recovering/Resolving]

NARRATIVE: CASE EVENT DATE: 20190104
